FAERS Safety Report 21957605 (Version 1)
Quarter: 2023Q1

REPORT INFORMATION
  Report Type: Spontaneous
  Country: US (occurrence: US)
  Receive Date: 20230206
  Receipt Date: 20230206
  Transmission Date: 20230417
  Serious: No
  Sender: FDA-Public Use
  Company Number: US-009507513-2301USA009995

PATIENT
  Age: 1 Year
  Sex: Male

DRUGS (5)
  1. CANCIDAS [Suspect]
     Active Substance: CASPOFUNGIN ACETATE
     Indication: Disseminated mucormycosis
     Dosage: UNK
  2. SARGRAMOSTIM [Concomitant]
     Active Substance: SARGRAMOSTIM
     Indication: Disseminated mucormycosis
     Dosage: 250 MICROGRAM/M2 PER DOSE, QD
  3. SARGRAMOSTIM [Concomitant]
     Active Substance: SARGRAMOSTIM
     Dosage: UNK
     Route: 061
  4. AMPHOTERICIN B [Concomitant]
     Active Substance: AMPHOTERICIN B
     Indication: Disseminated mucormycosis
     Dosage: UNK
  5. GRANULOCYTE-MACROPHAGE COLONY-STIMULATING FACTOR [Concomitant]
     Active Substance: GRANULOCYTE-MACROPHAGE COLONY-STIMULATING FACTOR
     Indication: Disseminated mucormycosis
     Dosage: UNK
     Route: 061

REACTIONS (1)
  - Product use in unapproved indication [Unknown]
